FAERS Safety Report 6692872-5 (Version None)
Quarter: 2010Q2

REPORT INFORMATION
  Report Type: 
  Country: None (occurrence: None)
  Receive Date: 20100419
  Receipt Date: 20100414
  Transmission Date: 20101027
  Serious: Yes (Other)
  Sender: FDA-Public Use
  Company Number: 1000013195

PATIENT
  Sex: Female

DRUGS (7)
  1. LEVOTHYROXINE [Suspect]
     Dosage: 25 MCG
  2. CLARITIN REDITABS [Suspect]
     Dosage: 5 MG, ORAL
     Route: 048
  3. SINGULAIR [Concomitant]
  4. SOTALOL HCL [Concomitant]
  5. ANTIBIOTICS [Concomitant]
  6. NEXIUM [Concomitant]
  7. ALPRAZOLAM [Concomitant]

REACTIONS (1)
  - ATRIAL FIBRILLATION [None]
